FAERS Safety Report 9106291 (Version 2)
Quarter: 2013Q1

REPORT INFORMATION
  Report Type: Spontaneous
  Country: CO (occurrence: CO)
  Receive Date: 20130221
  Receipt Date: 20130304
  Transmission Date: 20140127
  Serious: Yes (Other)
  Sender: FDA-Public Use
  Company Number: CO-BAXTER-2013BAX006692

PATIENT
  Sex: 0

DRUGS (1)
  1. SEVOFLURANO [Suspect]
     Indication: ANAESTHESIA

REACTIONS (1)
  - Unwanted awareness during anaesthesia [Unknown]
